FAERS Safety Report 12690849 (Version 1)
Quarter: 2016Q3

REPORT INFORMATION
  Report Type: Spontaneous
  Country: US (occurrence: US)
  Receive Date: 20160826
  Receipt Date: 20160826
  Transmission Date: 20161109
  Serious: Yes (Hospitalization, Other)
  Sender: FDA-Public Use
  Company Number: US-ASTRAZENECA-2016SE89938

PATIENT
  Age: 1105 Month
  Sex: Male

DRUGS (4)
  1. CRESTOR [Suspect]
     Active Substance: ROSUVASTATIN CALCIUM
     Indication: THROMBOSIS
     Route: 048
     Dates: start: 2011
  2. PLAVIX [Concomitant]
     Active Substance: CLOPIDOGREL BISULFATE
     Dosage: 75.0MG UNKNOWN
     Route: 065
  3. PRAVACHOL [Concomitant]
     Active Substance: PRAVASTATIN SODIUM
     Route: 065
  4. ATORVASTATIN [Concomitant]
     Active Substance: ATORVASTATIN
     Route: 065

REACTIONS (21)
  - Chromaturia [Unknown]
  - Concussion [Unknown]
  - Fluid imbalance [Unknown]
  - Blood pressure increased [Unknown]
  - Fall [Unknown]
  - Tooth fracture [Unknown]
  - Urinary tract infection [Unknown]
  - Pneumonia [Unknown]
  - Catheter site infection [Unknown]
  - Drug hypersensitivity [Unknown]
  - Thyroid mass [Unknown]
  - Head injury [Unknown]
  - Swelling [Unknown]
  - Weight decreased [Unknown]
  - Dysphonia [Unknown]
  - Pulmonary hypertension [Unknown]
  - Confusional state [Unknown]
  - Dysphagia [Unknown]
  - Eye contusion [Unknown]
  - Food poisoning [Unknown]
  - Sepsis [Unknown]

NARRATIVE: CASE EVENT DATE: 201505
